FAERS Safety Report 5672787-1 (Version None)
Quarter: 2008Q1

REPORT INFORMATION
  Report Type: 
  Country: None (occurrence: None)
  Receive Date: 20080319
  Receipt Date: 20071003
  Transmission Date: 20080703
  Serious: No
  Sender: FDA-Public Use
  Company Number: US-KINGPHARMUSA00001-K200701287

PATIENT

DRUGS (4)
  1. ALTACE [Suspect]
     Indication: HYPERTENSION
     Dosage: 2.5 MG, BID
     Route: 048
     Dates: start: 20070901, end: 20070901
  2. ZOLOFT [Concomitant]
     Dosage: 100 MG, QD
  3. CLARITIN /00917501/ [Concomitant]
     Dosage: 10 MG, QD
  4. NASACORT [Concomitant]
     Dosage: UNK, QD
     Route: 045

REACTIONS (8)
  - DRUG EFFECT DECREASED [None]
  - DYSURIA [None]
  - MICTURITION DISORDER [None]
  - MICTURITION URGENCY [None]
  - URINARY RETENTION [None]
  - URINARY TRACT INFECTION [None]
  - URINE FLOW DECREASED [None]
  - URINE OUTPUT DECREASED [None]
